FAERS Safety Report 9744892 (Version 1)
Quarter: 2013Q4

REPORT INFORMATION
  Report Type: Spontaneous
  Country: DE (occurrence: DE)
  Receive Date: 20131211
  Receipt Date: 20131211
  Transmission Date: 20140711
  Serious: Yes (Other)
  Sender: FDA-Public Use
  Company Number: DE-DRREDDYS-GER/GER/13/0036104

PATIENT
  Age: 76 Year
  Sex: Male

DRUGS (4)
  1. IBUBETA 400 AKUT (IBUPROFEN) [Suspect]
     Indication: BACK PAIN
     Route: 048
  2. IBUBETA 400 AKUT (IBUPROFEN) [Suspect]
     Route: 048
  3. IBUBETA 400 AKUT (IBUPROFEN) [Suspect]
     Route: 048
  4. INSULIN [Concomitant]
     Indication: PRODUCT USED FOR UNKNOWN INDICATION

REACTIONS (1)
  - Blood glucose increased [Recovering/Resolving]
